FAERS Safety Report 6971000-2 (Version None)
Quarter: 2010Q3

REPORT INFORMATION
  Report Type: 
  Country: None (occurrence: None)
  Receive Date: 20100908
  Receipt Date: 20100901
  Transmission Date: 20110219
  Serious: Yes (Hospitalization)
  Sender: FDA-Public Use
  Company Number: JP-ROCHE-725493

PATIENT
  Sex: Female
  Weight: 78 kg

DRUGS (17)
  1. TOCILIZUMAB [Suspect]
     Indication: RHEUMATOID ARTHRITIS
     Route: 041
     Dates: start: 20080917, end: 20080917
  2. TOCILIZUMAB [Suspect]
     Route: 041
     Dates: start: 20081015, end: 20081015
  3. TOCILIZUMAB [Suspect]
     Route: 041
     Dates: start: 20081119, end: 20081119
  4. TOCILIZUMAB [Suspect]
     Route: 041
     Dates: start: 20081217, end: 20081217
  5. TOCILIZUMAB [Suspect]
     Route: 041
     Dates: start: 20090114, end: 20090114
  6. TOCILIZUMAB [Suspect]
     Route: 041
     Dates: start: 20090218, end: 20090218
  7. TOCILIZUMAB [Suspect]
     Route: 041
     Dates: start: 20090318, end: 20090318
  8. TOCILIZUMAB [Suspect]
     Route: 041
     Dates: start: 20090415, end: 20090415
  9. TOCILIZUMAB [Suspect]
     Route: 041
     Dates: start: 20090514, end: 20090514
  10. TOCILIZUMAB [Suspect]
     Route: 041
     Dates: start: 20090610, end: 20090610
  11. TOCILIZUMAB [Suspect]
     Route: 041
     Dates: start: 20090708, end: 20090708
  12. TOCILIZUMAB [Suspect]
     Route: 041
     Dates: start: 20090805, end: 20090805
  13. TOCILIZUMAB [Suspect]
     Route: 041
     Dates: start: 20090902
  14. RHEUMATREX [Concomitant]
     Route: 048
  15. ISCOTIN [Concomitant]
     Route: 048
  16. FOLIAMIN [Concomitant]
     Route: 048
  17. SAIREI-TO [Concomitant]
     Route: 048

REACTIONS (1)
  - THYROID NEOPLASM [None]
